FAERS Safety Report 9885489 (Version 1)
Quarter: 2014Q1

REPORT INFORMATION
  Report Type: Spontaneous
  Country: FR (occurrence: FR)
  Receive Date: 20140210
  Receipt Date: 20140210
  Transmission Date: 20141002
  Serious: Yes (Hospitalization, Other)
  Sender: FDA-Public Use
  Company Number: FR-PFIZER INC-2014030498

PATIENT
  Age: 50 Year
  Sex: Male

DRUGS (5)
  1. XANAX [Suspect]
     Dosage: 0.50 MG, 2 TABLETS DAILY
     Route: 048
  2. ZOLPIDEM TARTRATE [Suspect]
     Dosage: 2 DF, DAILY
     Route: 048
  3. EFFEXOR [Concomitant]
     Dosage: 1 DF, DAILY
     Route: 048
  4. COMBIVIR [Concomitant]
     Dosage: 150 MG / 300 MG, 1 DF, DAILY
     Route: 048
  5. VIRAMUNE [Concomitant]
     Dosage: 1 DF, DAILY
     Route: 048

REACTIONS (10)
  - Coma [Recovered/Resolved]
  - Dyskinesia [Recovered/Resolved]
  - Electroencephalogram abnormal [Recovered/Resolved]
  - Respiratory disorder [Recovered/Resolved]
  - Amnesia [Unknown]
  - Toxicity to various agents [Unknown]
  - Toxicity to various agents [Unknown]
  - Alcohol interaction [Unknown]
  - Livedo reticularis [Recovered/Resolved]
  - Withdrawal syndrome [Recovered/Resolved]
